FAERS Safety Report 4869059-1 (Version None)
Quarter: 2005Q4

REPORT INFORMATION
  Report Type: 
  Country: None (occurrence: None)
  Receive Date: 20051222
  Receipt Date: 20051207
  Transmission Date: 20060501
  Serious: Yes (Hospitalization)
  Sender: FDA-Public Use
  Company Number: 2005BH003425

PATIENT
  Sex: Male

DRUGS (3)
  1. ADVATE (OCTOCOG ALFA) [Suspect]
     Indication: SURGERY
     Dosage: UNKNOWN; AS NEEDED; UNK
     Dates: start: 20051101
  2. MORPHINE [Concomitant]
  3. ANTIHEMOPHILIC FACOR [Concomitant]

REACTIONS (2)
  - PANCREATIC NEOPLASM [None]
  - VOMITING [None]
